FAERS Safety Report 7481624-4 (Version None)
Quarter: 2011Q2

REPORT INFORMATION
  Report Type: 
  Country: None (occurrence: None)
  Receive Date: 20110516
  Receipt Date: 20110502
  Transmission Date: 20111010
  Serious: Yes (Other)
  Sender: FDA-Public Use
  Company Number: US-CELGENEUS-163-21880-11020245

PATIENT
  Sex: Male

DRUGS (5)
  1. DOXIL [Suspect]
     Indication: MULTIPLE MYELOMA
     Route: 065
  2. REVLIMID [Suspect]
     Indication: MULTIPLE MYELOMA
     Route: 048
     Dates: start: 20080430, end: 20090913
  3. DEXAMETHASONE [Suspect]
     Indication: MULTIPLE MYELOMA
     Route: 065
  4. VINCRISTINE [Suspect]
     Indication: MULTIPLE MYELOMA
     Route: 065
  5. MELPHALAN HYDROCHLORIDE [Suspect]
     Indication: MULTIPLE MYELOMA
     Route: 065

REACTIONS (1)
  - ACUTE MYELOID LEUKAEMIA [None]
